FAERS Safety Report 8809092 (Version 1)
Quarter: 2012Q4

REPORT INFORMATION
  Report Type: 
  Country: US (occurrence: US)
  Receive Date: 20120926
  Receipt Date: 20120926
  Transmission Date: 20130627
  Serious: No
  Sender: FDA-Public Use
  Company Number: US-B.I. PHARMACEUTICALS,INC./RIDGEFIELD-2012-BP-23125BP

PATIENT
  Age: 44 Year
  Sex: Female

DRUGS (5)
  1. SPIRIVA [Suspect]
     Dosage: 18 mcg
     Route: 055
     Dates: start: 20120809
  2. SPIRIVA [Suspect]
     Route: 048
     Dates: start: 20120920, end: 20120920
  3. XANAX [Concomitant]
     Indication: ANXIETY
     Route: 048
     Dates: start: 201201
  4. AMBIEN [Concomitant]
     Indication: SLEEP DISORDER
     Dosage: 10 mg
     Route: 048
     Dates: start: 20120904
  5. FLUOXETINE [Concomitant]
     Dosage: 40 mg
     Route: 048
     Dates: start: 201201

REACTIONS (1)
  - Incorrect route of drug administration [Recovered/Resolved]
